FAERS Safety Report 7204024-0 (Version None)
Quarter: 2010Q4

REPORT INFORMATION
  Report Type: 
  Country: None (occurrence: None)
  Receive Date: 20101230
  Receipt Date: 20101216
  Transmission Date: 20110411
  Serious: Yes (Other)
  Sender: FDA-Public Use
  Company Number: PHHY2010DE86116

PATIENT
  Age: 29 Year
  Sex: Male

DRUGS (1)
  1. SULFADIAZINE [Suspect]
     Indication: BLISTER
     Dosage: TWICE DAILY

REACTIONS (1)
  - ARGYRIA [None]
